FAERS Safety Report 17432124 (Version 2)
Quarter: 2021Q1

REPORT INFORMATION
  Report Type: Report from Study
  Country: JP (occurrence: JP)
  Receive Date: 20200218
  Receipt Date: 20210305
  Transmission Date: 20210419
  Serious: Yes (Death, Hospitalization, Other)
  Sender: FDA-Public Use
  Company Number: JP-BAYER-2018-185208

PATIENT
  Age: 68 Year
  Sex: Male
  Weight: 70.8 kg

DRUGS (6)
  1. XOFIGO [Suspect]
     Active Substance: RADIUM RA-223 DICHLORIDE
     Indication: METASTASES TO BONE
     Dosage: 55KBQ/KG
     Route: 042
     Dates: start: 20171006, end: 20171006
  2. DEGARELIX [Concomitant]
     Active Substance: DEGARELIX
     Indication: PROSTATE CANCER
     Dosage: DAILY DOSE 80 MG
     Route: 013
  3. DENOSUMAB [Concomitant]
     Active Substance: DENOSUMAB
     Indication: PROSTATE CANCER
     Dosage: DAILY DOSE 120 MG
  4. XOFIGO [Suspect]
     Active Substance: RADIUM RA-223 DICHLORIDE
     Indication: HORMONE-REFRACTORY PROSTATE CANCER
  5. DEXAMETHASONE. [Concomitant]
     Active Substance: DEXAMETHASONE
     Indication: PROSTATE CANCER
     Dosage: DAILY DOSE .5 MG
     Route: 048
  6. ETODOLAC. [Concomitant]
     Active Substance: ETODOLAC
     Indication: PROSTATE CANCER
     Dosage: DAILY DOSE 400 MG
     Route: 048
     Dates: start: 20171006

REACTIONS (7)
  - Erythropenia [Not Recovered/Not Resolved]
  - Neutropenia [Recovered/Resolved]
  - Bone pain [Recovering/Resolving]
  - Hormone-refractory prostate cancer [Fatal]
  - Leukopenia [Recovered/Resolved]
  - Thrombocytopenia [Not Recovered/Not Resolved]
  - Decreased appetite [Not Recovered/Not Resolved]

NARRATIVE: CASE EVENT DATE: 20171020
